FAERS Safety Report 22039321 (Version 1)
Quarter: 2023Q1

REPORT INFORMATION
  Report Type: Spontaneous
  Country: US (occurrence: None)
  Receive Date: 20230224
  Receipt Date: 20230224
  Transmission Date: 20230417
  Serious: Yes (Other)
  Sender: FDA-Public Use
  Company Number: None

PATIENT
  Age: 34 Year
  Sex: Male
  Weight: 110.25 kg

DRUGS (1)
  1. TIANEPTINE [Suspect]
     Active Substance: TIANEPTINE
     Indication: Weight decreased
     Dosage: OTHER QUANTITY : 1 CAPSULE(S);?OTHER FREQUENCY : DOESN^T SAY WHEN;?
     Route: 048

REACTIONS (10)
  - Drug dependence [None]
  - Drug abuse [None]
  - Withdrawal syndrome [None]
  - Product advertising issue [None]
  - Hepatic enzyme increased [None]
  - Insomnia [None]
  - Hypophagia [None]
  - Arthralgia [None]
  - Pallor [None]
  - Dark circles under eyes [None]

NARRATIVE: CASE EVENT DATE: 20230120
